FAERS Safety Report 8622484-5 (Version None)
Quarter: 2012Q3

REPORT INFORMATION
  Report Type: 
  Country: None (occurrence: None)
  Receive Date: 20120827
  Receipt Date: 20120821
  Transmission Date: 20120928
  Serious: Yes (Other)
  Sender: FDA-Public Use
  Company Number: US-PFIZER INC-2012168484

PATIENT
  Age: 77 Year
  Sex: Female

DRUGS (1)
  1. INLYTA [Suspect]
     Indication: METASTATIC RENAL CELL CARCINOMA
     Dosage: 7 MG, 2X/DAY
     Route: 048
     Dates: start: 20120410, end: 20120610

REACTIONS (1)
  - TRANSIENT ISCHAEMIC ATTACK [None]
